FAERS Safety Report 14119396 (Version 2)
Quarter: 2018Q3

REPORT INFORMATION
  Report Type: Spontaneous
  Country: US (occurrence: US)
  Receive Date: 20171024
  Receipt Date: 20180828
  Transmission Date: 20181010
  Serious: Yes (Other)
  Sender: FDA-Public Use
  Company Number: US-PFIZER INC-2017455165

PATIENT
  Age: 64 Year
  Sex: Female
  Weight: 101.13 kg

DRUGS (1)
  1. IBRANCE [Suspect]
     Active Substance: PALBOCICLIB
     Indication: BREAST CANCER METASTATIC
     Dosage: 125 MG, CYCLIC (DAY1 TO DAY 21 EVERY 28 DAYS)
     Route: 048
     Dates: start: 20171011

REACTIONS (6)
  - Fatigue [Unknown]
  - Diplopia [Unknown]
  - Muscle spasms [Unknown]
  - Neuropathy peripheral [Unknown]
  - Lacrimation increased [Unknown]
  - Musculoskeletal chest pain [Unknown]
